FAERS Safety Report 16729951 (Version 1)
Quarter: 2019Q3

REPORT INFORMATION
  Report Type: Spontaneous
  Country: US (occurrence: US)
  Receive Date: 20190821
  Receipt Date: 20190821
  Transmission Date: 20191005
  Serious: Yes (Other)
  Sender: FDA-Public Use
  Company Number: None

PATIENT
  Age: 33 Year
  Sex: Male

DRUGS (6)
  1. MEDICAL MARIJUANA [Concomitant]
     Active Substance: CANNABIS SATIVA SUBSP. INDICA TOP
  2. GENERIC VIAGRA [Concomitant]
  3. LOVENOX [Suspect]
     Active Substance: ENOXAPARIN SODIUM
     Indication: NERVE COMPRESSION
  4. MULTI VITAMIN [Concomitant]
     Active Substance: VITAMINS
  5. FISH OIL [Concomitant]
     Active Substance: FISH OIL
  6. CYCLOBENZAPRINE. [Concomitant]
     Active Substance: CYCLOBENZAPRINE

REACTIONS (4)
  - Discomfort [None]
  - Product administration error [None]
  - Dyspepsia [None]
  - Contusion [None]

NARRATIVE: CASE EVENT DATE: 20181107
